FAERS Safety Report 5597174-6 (Version None)
Quarter: 2007Q4

REPORT INFORMATION
  Report Type: 
  Country: None (occurrence: None)
  Receive Date: 20071221
  Receipt Date: 20071107
  Transmission Date: 20080405
  Serious: No
  Sender: FDA-Public Use
  Company Number: SPV1-2007-04857

PATIENT
  Age: 10 Year
  Sex: Male
  Weight: 40.4 kg

DRUGS (2)
  1. VYVANSE [Suspect]
     Indication: ATTENTION DEFICIT/HYPERACTIVITY DISORDER
     Dosage: 30 MG, 1X/DAY:QD, ORAL ; 50 MG, 1X/DAY:QD, ORAL
     Route: 048
     Dates: start: 20070904, end: 20071007
  2. VYVANSE [Suspect]
     Indication: ATTENTION DEFICIT/HYPERACTIVITY DISORDER
     Dosage: 30 MG, 1X/DAY:QD, ORAL ; 50 MG, 1X/DAY:QD, ORAL
     Route: 048
     Dates: start: 20071008

REACTIONS (7)
  - ANXIETY [None]
  - DECREASED APPETITE [None]
  - HYPOTENSION [None]
  - INSOMNIA [None]
  - SPEECH DISORDER [None]
  - VISION BLURRED [None]
  - WEIGHT DECREASED [None]
